FAERS Safety Report 4449878-6 (Version None)
Quarter: 2004Q3

REPORT INFORMATION
  Report Type: 
  Country: None (occurrence: None)
  Receive Date: 20040915
  Receipt Date: 20040909
  Transmission Date: 20050211
  Serious: Yes (Life-Threatening)
  Sender: FDA-Public Use
  Company Number: US-MERCK-0409USA00750

PATIENT
  Age: 61 Year
  Sex: Female

DRUGS (19)
  1. PERCOGESIC [Concomitant]
     Route: 065
  2. ULTRACET [Concomitant]
     Route: 065
  3. ASPIRIN [Concomitant]
     Route: 065
  4. BETA CAROTENE [Concomitant]
     Route: 065
  5. DICYCLOMINE HYDROCHLORIDE [Concomitant]
     Route: 065
  6. LEXAPRO [Concomitant]
     Route: 065
  7. HYDROCODONE HYDROCHLORIDE [Concomitant]
     Route: 065
  8. LORAZEPAM [Concomitant]
     Route: 065
  9. MOBIC [Concomitant]
     Route: 065
  10. REMERON [Concomitant]
     Route: 065
  11. NORTRIPTYLINE [Concomitant]
     Route: 065
  12. PRILOSEC [Concomitant]
     Route: 065
  13. TRILEPTAL [Concomitant]
     Route: 065
  14. POTASSIUM (UNSPECIFIED) [Concomitant]
     Route: 065
  15. PROPOXYPHENE HYDROCHLORIDE [Concomitant]
     Route: 065
  16. VIOXX [Suspect]
     Route: 048
     Dates: start: 20040501
  17. TRAZODONE HYDROCHLORIDE [Concomitant]
     Route: 065
  18. VITAMINS (UNSPECIFIED) [Concomitant]
     Route: 065
  19. AMBIEN [Concomitant]
     Route: 065

REACTIONS (1)
  - CHEST PAIN [None]
